FAERS Safety Report 14997020 (Version 2)
Quarter: 2018Q2

REPORT INFORMATION
  Report Type: Spontaneous
  Country: JP (occurrence: JP)
  Receive Date: 20180611
  Receipt Date: 20180625
  Transmission Date: 20180711
  Serious: Yes (Hospitalization)
  Sender: FDA-Public Use
  Company Number: JP-PFIZER INC-2018233281

PATIENT
  Age: 74 Year
  Sex: Male
  Weight: 63 kg

DRUGS (3)
  1. BENEFIX [Suspect]
     Active Substance: COAGULATION FACTOR IX RECOMBINANT HUMAN\ISOPROPYL ALCOHOL
     Indication: HAEMORRHAGE
     Dosage: AS NEEDED ON DEMAND THERAPY
  2. BENEFIX [Suspect]
     Active Substance: COAGULATION FACTOR IX RECOMBINANT HUMAN\ISOPROPYL ALCOHOL
     Dosage: 6000 IU, VIA CONTINUOUS IV DRIP AFTERWARD FOR 3 TO 4 DAYS
     Route: 042
  3. BENEFIX [Suspect]
     Active Substance: COAGULATION FACTOR IX RECOMBINANT HUMAN\ISOPROPYL ALCOHOL
     Dosage: 6000 IU, VIA IV BOLUS BEFORE OPERATION
     Route: 042

REACTIONS (2)
  - Product use issue [Unknown]
  - Inguinal hernia [Unknown]
